FAERS Safety Report 5593992-9 (Version None)
Quarter: 2008Q1

REPORT INFORMATION
  Report Type: 
  Country: None (occurrence: None)
  Receive Date: 20080116
  Receipt Date: 20080115
  Transmission Date: 20080703
  Serious: Yes (Hospitalization)
  Sender: FDA-Public Use
  Company Number: JP-GENENTECH-249501

PATIENT
  Age: 71 Year
  Sex: Male

DRUGS (11)
  1. ACTIVASE [Suspect]
     Indication: CEREBRAL INFARCTION
     Dosage: 32 MG, UNKNOWN
     Route: 042
     Dates: start: 20070702
  2. GASTER [Concomitant]
     Indication: DRUG USE FOR UNKNOWN INDICATION
     Dosage: 20 MG, UNK
     Route: 048
     Dates: end: 20071001
  3. GASTER [Concomitant]
     Dosage: 40 MG, UNK
     Route: 048
     Dates: start: 20071002
  4. BUFFERIN (UNITED STATES) [Concomitant]
     Indication: DRUG USE FOR UNKNOWN INDICATION
     Dosage: 81 MG, UNK
     Route: 048
     Dates: end: 20071001
  5. BUFFERIN (UNITED STATES) [Concomitant]
     Dosage: 162 MG, UNK
     Route: 048
     Dates: start: 20071002
  6. ENALAPRIL MALEATE [Concomitant]
     Indication: DRUG USE FOR UNKNOWN INDICATION
     Dosage: 10 MG, UNK
     Route: 048
     Dates: end: 20071001
  7. ENALAPRIL MALEATE [Concomitant]
     Dosage: 20 MG, UNK
     Route: 048
     Dates: start: 20071002
  8. ADALAT [Concomitant]
     Indication: DRUG USE FOR UNKNOWN INDICATION
     Dosage: 40 MG, UNK
     Route: 048
     Dates: end: 20071001
  9. ADALAT [Concomitant]
     Dosage: 80 MG, UNK
     Route: 048
     Dates: start: 20071002
  10. DIOVAN [Concomitant]
     Indication: DRUG USE FOR UNKNOWN INDICATION
     Dosage: 160 MG, UNK
     Route: 048
     Dates: end: 20071001
  11. DIOVAN [Concomitant]
     Dosage: 320 MG, UNK
     Route: 048
     Dates: start: 20071002

REACTIONS (2)
  - ILEUS [None]
  - INGUINAL HERNIA [None]
